FAERS Safety Report 25033343 (Version 2)
Quarter: 2025Q2

REPORT INFORMATION
  Report Type: Spontaneous
  Country: CA (occurrence: CA)
  Receive Date: 20250303
  Receipt Date: 20250411
  Transmission Date: 20250716
  Serious: Yes (Death, Other)
  Sender: SANOFI AVENTIS
  Company Number: CA-SA-2025SA062442

PATIENT
  Age: 56 Year
  Sex: Female

DRUGS (8)
  1. DUPIXENT [Suspect]
     Active Substance: DUPILUMAB
     Route: 058
     Dates: start: 2024
  2. CLONAZEPAM [Concomitant]
     Active Substance: CLONAZEPAM
  3. PREDNISONE [Concomitant]
     Active Substance: PREDNISONE
  4. PREGABALIN [Concomitant]
     Active Substance: PREGABALIN
  5. SPIRIVA [Concomitant]
     Active Substance: TIOTROPIUM BROMIDE MONOHYDRATE
  6. TRINTELLIX [Concomitant]
     Active Substance: VORTIOXETINE HYDROBROMIDE
  7. VENTOLIN [Concomitant]
     Active Substance: ALBUTEROL SULFATE
  8. ZENHALE [Concomitant]
     Active Substance: FORMOTEROL FUMARATE\MOMETASONE FUROATE

REACTIONS (2)
  - Cor pulmonale [Fatal]
  - Malaise [Fatal]

NARRATIVE: CASE EVENT DATE: 20240101
